FAERS Safety Report 4398521-3 (Version None)
Quarter: 2004Q3

REPORT INFORMATION
  Report Type: 
  Country: None (occurrence: None)
  Receive Date: 20040715
  Receipt Date: 20040531
  Transmission Date: 20050211
  Serious: Yes (Other)
  Sender: FDA-Public Use
  Company Number: AU-GLAXOSMITHKLINE-B0334708A

PATIENT
  Age: 1 Day
  Sex: Female
  Weight: 3.3 kg

DRUGS (3)
  1. RETROVIR [Suspect]
     Dosage: 2MGK PER DAY
     Route: 048
     Dates: start: 20040530, end: 20040531
  2. VITAMIN K TAB [Concomitant]
     Indication: PROPHYLAXIS
     Route: 030
     Dates: start: 20040530
  3. HEPATITIS B VACCINE [Concomitant]
     Indication: PROPHYLAXIS
     Route: 030
     Dates: start: 20040530

REACTIONS (3)
  - ACCIDENTAL OVERDOSE [None]
  - BLOOD CREATINE PHOSPHOKINASE INCREASED [None]
  - LIVER FUNCTION TEST ABNORMAL [None]
